FAERS Safety Report 15772000 (Version 2)
Quarter: 2019Q1

REPORT INFORMATION
  Report Type: Spontaneous
  Country: US (occurrence: US)
  Receive Date: 20181228
  Receipt Date: 20190310
  Transmission Date: 20190417
  Serious: Yes (Death)
  Sender: FDA-Public Use
  Company Number: US-PRINSTON PHARMACEUTICAL INC.-2018PRN01743

PATIENT
  Age: 68 Year
  Sex: Male
  Weight: 66.67 kg

DRUGS (2)
  1. UNSPECIFIED MEDICATION FOR CHOLESTROL [Concomitant]
  2. VALSARTAN. [Suspect]
     Active Substance: VALSARTAN
     Indication: BLOOD PRESSURE ABNORMAL
     Dosage: 160 MG
     Route: 048
     Dates: start: 20160113, end: 2017

REACTIONS (3)
  - Oesophageal carcinoma [Fatal]
  - Colon cancer [Fatal]
  - Metastatic neoplasm [Fatal]

NARRATIVE: CASE EVENT DATE: 20171026
